FAERS Safety Report 4904449-X (Version None)
Quarter: 2006Q1

REPORT INFORMATION
  Report Type: 
  Country: None (occurrence: None)
  Receive Date: 20060208
  Receipt Date: 20050907
  Transmission Date: 20060701
  Serious: No
  Sender: FDA-Public Use
  Company Number: US-GLAXOSMITHKLINE-A0573300A

PATIENT
  Age: 48 Year
  Sex: Male

DRUGS (3)
  1. PAROXETINE HCL [Suspect]
     Indication: OBSESSIVE-COMPULSIVE DISORDER
     Dosage: 30MG PER DAY
     Route: 048
     Dates: start: 20050801
  2. XANAX [Concomitant]
  3. XANAX [Concomitant]

REACTIONS (6)
  - AGITATION [None]
  - FATIGUE [None]
  - HEAD DISCOMFORT [None]
  - HEADACHE [None]
  - LETHARGY [None]
  - PERSONALITY CHANGE [None]
